FAERS Safety Report 7959589-8 (Version None)
Quarter: 2011Q4

REPORT INFORMATION
  Report Type: 
  Country: None (occurrence: None)
  Receive Date: 20111206
  Receipt Date: 20111130
  Transmission Date: 20120403
  Serious: Yes (Other)
  Sender: FDA-Public Use
  Company Number: JP-GLAXOSMITHKLINE-B0767246A

PATIENT
  Sex: Male

DRUGS (1)
  1. NICOTINE [Suspect]
     Indication: EX-TOBACCO USER
     Dosage: 1PAT PER DAY
     Route: 062
     Dates: start: 20111108, end: 20111127

REACTIONS (5)
  - STOMATITIS [None]
  - MALAISE [None]
  - SOMNOLENCE [None]
  - RESPIRATORY DISTRESS [None]
  - ECZEMA [None]
